FAERS Safety Report 5553587-X (Version None)
Quarter: 2007Q4

REPORT INFORMATION
  Report Type: 
  Country: None (occurrence: None)
  Receive Date: 20071213
  Receipt Date: 20071127
  Transmission Date: 20080405
  Serious: No
  Sender: FDA-Public Use
  Company Number: US-BAYER-200715641NA

PATIENT
  Age: 68 Year
  Sex: Female

DRUGS (3)
  1. MAGNEVIST [Suspect]
     Indication: NUCLEAR MAGNETIC RESONANCE IMAGING
     Dosage: TOTAL DAILY DOSE: 20 ML  UNIT DOSE: 20 ML
     Route: 042
     Dates: start: 20071121, end: 20071121
  2. DYAZIDE [Concomitant]
  3. LESCOL [Concomitant]

REACTIONS (2)
  - NASAL CONGESTION [None]
  - THROAT IRRITATION [None]
